FAERS Safety Report 11611070 (Version 1)
Quarter: 2015Q4

REPORT INFORMATION
  Report Type: Spontaneous
  Country: US (occurrence: None)
  Receive Date: 20151007
  Receipt Date: 20151007
  Transmission Date: 20160304
  Serious: Yes (Life-Threatening, Hospitalization)
  Sender: FDA-Public Use
  Company Number: None

PATIENT
  Age: 62 Year
  Sex: Male
  Weight: 111.5 kg

DRUGS (2)
  1. VANCOMYCIN [Suspect]
     Active Substance: VANCOMYCIN
     Route: 058
     Dates: start: 20150421, end: 20150525
  2. CEFEPIME [Suspect]
     Active Substance: CEFEPIME HYDROCHLORIDE
     Route: 058
     Dates: start: 20150421, end: 20150525

REACTIONS (15)
  - Blood alkaline phosphatase increased [None]
  - Alanine aminotransferase increased [None]
  - Wheezing [None]
  - Eosinophilia [None]
  - Pruritus [None]
  - Dizziness [None]
  - Urticaria [None]
  - Hypotension [None]
  - Dyspnoea [None]
  - Cough [None]
  - Septic shock [None]
  - Pyrexia [None]
  - Rash [None]
  - Acute kidney injury [None]
  - Hepatic enzyme increased [None]

NARRATIVE: CASE EVENT DATE: 20150525
